FAERS Safety Report 25553407 (Version 1)
Quarter: 2025Q3

REPORT INFORMATION
  Report Type: Spontaneous
  Country: BR (occurrence: BR)
  Receive Date: 20250715
  Receipt Date: 20250715
  Transmission Date: 20251021
  Serious: Yes (Other)
  Sender: SANOFI AVENTIS
  Company Number: BR-SA-2025SA198285

PATIENT
  Age: 18 Year
  Sex: Female

DRUGS (1)
  1. DUPIXENT [Suspect]
     Active Substance: DUPILUMAB

REACTIONS (5)
  - Myocarditis [Recovering/Resolving]
  - Kidney infection [Unknown]
  - Chest pain [Unknown]
  - Leukocytosis [Unknown]
  - Troponin increased [Unknown]

NARRATIVE: CASE EVENT DATE: 20250401
